FAERS Safety Report 7548184-0 (Version None)
Quarter: 2011Q2

REPORT INFORMATION
  Report Type: 
  Country: None (occurrence: None)
  Receive Date: 20110615
  Receipt Date: 20110609
  Transmission Date: 20111010
  Serious: Yes (Death, Other)
  Sender: FDA-Public Use
  Company Number: JP-JNJFOC-20110602352

PATIENT
  Age: 71 Year
  Sex: Male

DRUGS (3)
  1. FENTANYL-100 [Suspect]
     Indication: CANCER PAIN
     Route: 062
     Dates: start: 20110425
  2. FENTANYL-100 [Suspect]
     Route: 062
     Dates: start: 20110510
  3. MORPHINE HCL ELIXIR [Suspect]
     Indication: CANCER PAIN
     Route: 042

REACTIONS (3)
  - GASTRIC CANCER [None]
  - RESPIRATORY DEPRESSION [None]
  - DRUG EFFECT DECREASED [None]
